FAERS Safety Report 12236082 (Version 1)
Quarter: 2016Q2

REPORT INFORMATION
  Report Type: Spontaneous
  Country: JP (occurrence: JP)
  Receive Date: 20160404
  Receipt Date: 20160404
  Transmission Date: 20160815
  Serious: Yes (Other)
  Sender: FDA-Public Use
  Company Number: JP-ROXANE LABORATORIES, INC.-2016-RO-00593RO

PATIENT
  Age: 35 Year
  Sex: Male

DRUGS (6)
  1. FUROSEMIDE TABLETS USP, 20 MG [Suspect]
     Active Substance: FUROSEMIDE
     Indication: DIABETIC NEPHROPATHY
  2. HYPERTONIC SALINE [Suspect]
     Active Substance: SODIUM CHLORIDE
     Indication: DIABETIC NEPHROPATHY
  3. HYPERTONIC SALINE [Suspect]
     Active Substance: SODIUM CHLORIDE
     Indication: CARDIAC FAILURE ACUTE
     Route: 042
  4. FUROSEMIDE TABLETS USP, 20 MG [Suspect]
     Active Substance: FUROSEMIDE
     Indication: CARDIAC FAILURE ACUTE
     Route: 048
  5. CANDESARTAN [Concomitant]
     Active Substance: CANDESARTAN
     Dosage: 8 MG
     Route: 048
  6. LISINOPRIL. [Concomitant]
     Active Substance: LISINOPRIL
     Dosage: 10 MG
     Route: 065

REACTIONS (1)
  - Proteinuria [Recovered/Resolved]
